FAERS Safety Report 5320320-6 (Version None)
Quarter: 2007Q1

REPORT INFORMATION
  Report Type: 
  Country: None (occurrence: None)
  Receive Date: 20070215
  Receipt Date: 20060817
  Transmission Date: 20070707
  Serious: No
  Sender: FDA-Public Use
  Company Number: MC200600569

PATIENT
  Age: 53 Year
  Sex: Male

DRUGS (2)
  1. ANGIOMAX [Suspect]
     Dosage: SEE IMAGE
     Route: 040
     Dates: start: 20060308, end: 20060308
  2. ANGIOMAX [Suspect]
     Dosage: SEE IMAGE
     Route: 040
     Dates: start: 20060308, end: 20060308

REACTIONS (1)
  - THROMBOSIS [None]
